FAERS Safety Report 7861359-6 (Version None)
Quarter: 2011Q4

REPORT INFORMATION
  Report Type: 
  Country: None (occurrence: None)
  Receive Date: 20111027
  Receipt Date: 20111021
  Transmission Date: 20120403
  Serious: Yes (Other)
  Sender: FDA-Public Use
  Company Number: US-PFIZER INC-2011257488

PATIENT
  Sex: Female

DRUGS (5)
  1. NEURONTIN [Suspect]
     Dosage: DECREASING BY ONE 100MG DOSE
  2. LYRICA [Suspect]
     Dosage: 50MG IN THE DAY
  3. LYRICA [Suspect]
     Dosage: 50 MG, 2X/DAY
  4. NEURONTIN [Suspect]
     Indication: NEURALGIA
     Dosage: 3 OR 4 TIMES DAILY WITH 100MG OR 200MG DURING THE DAY AND 600MG AT NIGHT
  5. NEURONTIN [Suspect]
     Dosage: DECREASED TWO 100MG

REACTIONS (9)
  - DIZZINESS [None]
  - MALAISE [None]
  - ABDOMINAL PAIN UPPER [None]
  - LOSS OF CONSCIOUSNESS [None]
  - DRUG INEFFECTIVE [None]
  - MEDICATION ERROR [None]
  - SOMNOLENCE [None]
  - TREMOR [None]
  - HEADACHE [None]
